FAERS Safety Report 12697971 (Version 2)
Quarter: 2016Q3

REPORT INFORMATION
  Report Type: Spontaneous
  Country: US (occurrence: US)
  Receive Date: 20160830
  Receipt Date: 20160902
  Transmission Date: 20161109
  Serious: Yes (Hospitalization)
  Sender: FDA-Public Use
  Company Number: US-UNITED THERAPEUTICS-UNT-2016-013563

PATIENT
  Age: 61 Year
  Sex: Male
  Weight: 96.87 kg

DRUGS (1)
  1. REMODULIN [Suspect]
     Active Substance: TREPROSTINIL
     Indication: PULMONARY ARTERIAL HYPERTENSION
     Dosage: 0.030 ?G/KG, CONTINUING
     Route: 058
     Dates: start: 20160429

REACTIONS (5)
  - Lung disorder [Unknown]
  - Cholecystitis acute [Unknown]
  - Chest pain [Unknown]
  - Abdominal pain [Unknown]
  - Infusion site abscess [Unknown]

NARRATIVE: CASE EVENT DATE: 201608
